FAERS Safety Report 7366731-9 (Version None)
Quarter: 2011Q1

REPORT INFORMATION
  Report Type: 
  Country: None (occurrence: None)
  Receive Date: 20110322
  Receipt Date: 20110314
  Transmission Date: 20110831
  Serious: Yes (Hospitalization)
  Sender: FDA-Public Use
  Company Number: FI-ASTRAZENECA-2011SE14688

PATIENT
  Age: 27716 Day
  Sex: Male

DRUGS (10)
  1. MERONEM [Suspect]
     Indication: STAPHYLOCOCCAL SEPSIS
     Route: 042
     Dates: start: 20101204, end: 20110111
  2. ATRODUAL [Concomitant]
  3. PHYSIOTENS [Concomitant]
     Route: 048
  4. AVELOX [Concomitant]
     Route: 048
  5. PRATSIOL [Concomitant]
     Route: 048
  6. OMEPRAZOLE [Concomitant]
     Route: 048
  7. CLOXACILLIN STRAGEN [Suspect]
     Indication: STAPHYLOCOCCAL SEPSIS
     Route: 042
     Dates: start: 20101129, end: 20101204
  8. FRAGMIN [Concomitant]
     Route: 058
  9. SELOKEN ZOC [Concomitant]
     Route: 048
  10. OXYCONTIN [Concomitant]
     Route: 048

REACTIONS (1)
  - EOSINOPHILIA [None]
